FAERS Safety Report 6768762-6 (Version None)
Quarter: 2010Q2

REPORT INFORMATION
  Report Type: 
  Country: None (occurrence: None)
  Receive Date: 20100614
  Receipt Date: 20100602
  Transmission Date: 20101027
  Serious: Yes (Other)
  Sender: FDA-Public Use
  Company Number: FR-WYE-H14619710

PATIENT
  Age: 62 Year
  Sex: Male

DRUGS (12)
  1. AMIODARONE [Suspect]
     Indication: ATRIAL FIBRILLATION
     Route: 048
     Dates: start: 20070428, end: 20100305
  2. NOVONORM [Concomitant]
     Dosage: DOSE UNKNOWN
     Route: 065
     Dates: start: 20080601
  3. KARDEGIC [Concomitant]
     Dosage: DOSE UNKNOWN
     Route: 065
     Dates: start: 20070401
  4. TAHOR [Concomitant]
     Dosage: DOSE UNKNOWN
     Route: 065
  5. DOLIPRANE [Concomitant]
     Indication: MIGRAINE
     Route: 048
     Dates: start: 20100209, end: 20100209
  6. COVERSYL [Concomitant]
     Dosage: DOSE UNKNOWN
     Route: 065
     Dates: start: 20080601
  7. INSULIN DETEMIR [Concomitant]
     Dosage: DOSE UNKNOWN
     Route: 065
     Dates: start: 20071201
  8. OMEPRAZOLE [Concomitant]
     Dosage: DOSE UNKNOWN
     Route: 065
     Dates: start: 20080801
  9. OMACOR [Concomitant]
     Dosage: DOSE UNKNOWN
     Route: 065
     Dates: start: 20070401
  10. PREVISCAN [Interacting]
     Indication: DRUG USE FOR UNKNOWN INDICATION
     Route: 048
     Dates: start: 20070401, end: 20100210
  11. PREVISCAN [Interacting]
     Dosage: DOSE UNKNOWN
     Route: 048
     Dates: start: 20100211
  12. CARDENSIEL [Concomitant]
     Dosage: DOSE UNKNOWN
     Route: 065
     Dates: start: 20070401

REACTIONS (2)
  - DRUG INTERACTION [None]
  - INTERNATIONAL NORMALISED RATIO INCREASED [None]
